FAERS Safety Report 24379054 (Version 3)
Quarter: 2024Q4

REPORT INFORMATION
  Report Type: Spontaneous
  Country: FR (occurrence: FR)
  Receive Date: 20240930
  Receipt Date: 20241121
  Transmission Date: 20250114
  Serious: Yes (Life-Threatening, Hospitalization, Other)
  Sender: DR REDDYS
  Company Number: None

PATIENT
  Age: 73 Year
  Sex: Female

DRUGS (9)
  1. BORTEZOMIB [Suspect]
     Active Substance: BORTEZOMIB
     Indication: Plasma cell myeloma
     Dosage: VCD REGIMEN; RECEIVED 6 CYCLES?UNK, CYCLIC (X6), 1ST LINE
  2. CYCLOPHOSPHAMIDE [Suspect]
     Active Substance: CYCLOPHOSPHAMIDE
     Indication: Plasma cell myeloma
     Dosage: RECEIVED 6 CYCLES; VCD REGIMEN?UNK, CYCLIC (X6), 1ST LINE
  3. DEXAMETHASONE [Suspect]
     Active Substance: DEXAMETHASONE
     Indication: Plasma cell myeloma
     Dosage: RECEIVED 6 CYCLES; VCD REGIMEN
  4. DEXAMETHASONE [Suspect]
     Active Substance: DEXAMETHASONE
     Dosage: RECEIVED 4 CYCLES; DRD REGIMEN
  5. DEXAMETHASONE [Suspect]
     Active Substance: DEXAMETHASONE
     Dosage: RECEIVED TWO CYCLES; DD REGIMEN
  6. DEXAMETHASONE [Suspect]
     Active Substance: DEXAMETHASONE
     Dosage: UNK, CYCLIC (X6, 2ND LINE)
  7. DARATUMUMAB [Suspect]
     Active Substance: DARATUMUMAB
     Indication: Plasma cell myeloma
     Dosage: RECEIVED 4 CYCLES; DRD REGIMEN?UNK, CYCLIC (X6), 1ST LINE
  8. DARATUMUMAB [Suspect]
     Active Substance: DARATUMUMAB
     Dosage: RECEIVED 2 CYCLES; DD REGIMEN
  9. REVLIMID [Suspect]
     Active Substance: LENALIDOMIDE
     Indication: Plasma cell myeloma
     Dosage: RECEIVED 4 CYCLES; DRD REGIMEN?UNK, CYCLIC (X4, 2ND LINE)

REACTIONS (3)
  - Posterior reversible encephalopathy syndrome [Recovering/Resolving]
  - Sepsis [Unknown]
  - Lung disorder [Unknown]
